FAERS Safety Report 8297245-X (Version None)
Quarter: 2012Q2

REPORT INFORMATION
  Report Type: 
  Country: None (occurrence: None)
  Receive Date: 20120417
  Receipt Date: 20120417
  Transmission Date: 20120825
  Serious: Yes (Hospitalization)
  Sender: FDA-Public Use
  Company Number: None

PATIENT
  Sex: Female
  Weight: 99 kg

DRUGS (5)
  1. VINCRISTINE SULFATE [Suspect]
     Dosage: 12 MG
  2. PREDNISONE TAB [Suspect]
     Dosage: 2400 MG
  3. DOXORUBICIN HYDROCHLORIDE [Suspect]
     Dosage: 606 MG
  4. CYCLOPHOSPHAMIDE [Suspect]
     Dosage: 9040 MG
  5. RITUXIMAB (MOAB C2B8 ANTI CD20, CHIMERIC) [Suspect]
     Dosage: 4530 MG

REACTIONS (9)
  - SEPSIS [None]
  - CULTURE POSITIVE [None]
  - CHILLS [None]
  - DYSPNOEA [None]
  - SKIN LESION [None]
  - STAPHYLOCOCCAL INFECTION [None]
  - TACHYCARDIA [None]
  - ASTHENIA [None]
  - DEVICE RELATED INFECTION [None]
